FAERS Safety Report 5654143-5 (Version None)
Quarter: 2008Q1

REPORT INFORMATION
  Report Type: 
  Country: None (occurrence: None)
  Receive Date: 20080306
  Receipt Date: 20080225
  Transmission Date: 20080703
  Serious: No
  Sender: FDA-Public Use
  Company Number: US-BOEHRINGER INGELHEIM GMBH, GERMANY-2008-BP-02772BP

PATIENT
  Sex: Male

DRUGS (7)
  1. SPIRIVA [Suspect]
     Indication: LUNG INJURY
     Route: 055
     Dates: start: 20060201
  2. ZETIA [Concomitant]
  3. ALBUTEROL [Concomitant]
  4. ZYRTEC [Concomitant]
  5. TOPROL-XL [Concomitant]
  6. PREVACID [Concomitant]
  7. VITAMIN [Concomitant]

REACTIONS (1)
  - DRY MOUTH [None]
